FAERS Safety Report 6864737-7 (Version None)
Quarter: 2010Q3

REPORT INFORMATION
  Report Type: 
  Country: None (occurrence: None)
  Receive Date: 20100721
  Receipt Date: 20080402
  Transmission Date: 20110219
  Serious: No
  Sender: FDA-Public Use
  Company Number: US-PFIZER INC-2008029817

PATIENT
  Sex: Female
  Weight: 72.727 kg

DRUGS (5)
  1. CHANTIX [Suspect]
     Indication: SMOKING CESSATION THERAPY
     Dates: start: 20080320
  2. NORVASC [Concomitant]
     Indication: HYPERTENSION
  3. TOPROL-XL [Concomitant]
     Indication: HYPERTENSION
  4. PREMARIN [Concomitant]
  5. MOBIC [Concomitant]

REACTIONS (4)
  - ABDOMINAL PAIN UPPER [None]
  - CHEST PAIN [None]
  - DYSPNOEA [None]
  - PALPITATIONS [None]
